FAERS Safety Report 8045554-1 (Version None)
Quarter: 2012Q1

REPORT INFORMATION
  Report Type: 
  Country: None (occurrence: None)
  Receive Date: 20120113
  Receipt Date: 20120111
  Transmission Date: 20120608
  Serious: Yes (Hospitalization, Other)
  Sender: FDA-Public Use
  Company Number: DE-ROCHE-793883

PATIENT
  Sex: Male
  Weight: 84 kg

DRUGS (14)
  1. CITALOPRAM [Concomitant]
     Dosage: 20 MG,1DF/D,DEUG REPORTEDAS CITALICH
  2. ENOXAPARIN SODIUM [Concomitant]
     Dosage: CLEXANE 80,2DF/D
     Route: 058
  3. AMPHOTERICIN B [Concomitant]
     Dosage: 4DF/D
  4. AVASTIN [Suspect]
     Dosage: TEMPORARILY INTERRUPTED
     Route: 042
     Dates: start: 20111020, end: 20111110
  5. IRINOTECAN HYDROCHLORIDE [Suspect]
     Indication: COLORECTAL CANCER METASTATIC
     Dosage: DOSE: 330, UNITS: 2, FORM: INFUSION
     Route: 042
  6. LEUCOVORIN CALCIUM [Suspect]
     Indication: COLORECTAL CANCER METASTATIC
     Dosage: DOSE: 400, UNITS: 2, FORM: INFUSION, REPORTED AS CALCIUM-FOLINAT.
     Route: 042
     Dates: start: 20110729, end: 20111110
  7. AVASTIN [Suspect]
     Indication: COLORECTAL CANCER METASTATIC
     Dosage: DOSE: 420, UNITS: 2, FORM: INFUSION.
     Route: 042
  8. FLUOROURACIL [Suspect]
     Indication: COLORECTAL CANCER METASTATIC
     Dosage: DOSE: 6400, UNITS: 2, FORM: INFUSION.
     Route: 042
  9. LORAZEPAM [Concomitant]
     Dosage: TOTAL DAILY DOSE/ UNIT: BE VEDARF (NOT LEGIBLE).
  10. ENALAPRIL MALEATE [Concomitant]
     Dosage: 2 DF/D
  11. NOVALGIN [Concomitant]
     Dosage: 40 DROPS,4DF/D
  12. METOPROLOL TARTRATE [Concomitant]
     Dosage: 47.5 MG,3DF/D
  13. OXALIPLATIN [Suspect]
     Indication: COLORECTAL CANCER METASTATIC
     Dosage: DOSE: 170, UNITS: 2, FORM: INFUSION.
     Route: 042
     Dates: start: 20110729, end: 20111120
  14. METOCLOPRAMIDE HYDROCHLORIDE [Concomitant]
     Dosage: TOTAL DAILY DOSE / UNIT: 20 TD
     Dates: start: 20110729, end: 20110801

REACTIONS (7)
  - DIARRHOEA HAEMORRHAGIC [None]
  - HAEMATOCHEZIA [None]
  - OESOPHAGEAL CANDIDIASIS [None]
  - VOMITING [None]
  - NAUSEA [None]
  - DIARRHOEA [None]
  - ABDOMINAL PAIN [None]
